FAERS Safety Report 5235177-1 (Version None)
Quarter: 2007Q1

REPORT INFORMATION
  Report Type: 
  Country: None (occurrence: None)
  Receive Date: 20070211
  Receipt Date: 20070125
  Transmission Date: 20070707
  Serious: Yes (Other)
  Sender: FDA-Public Use
  Company Number: US-RB-2953-2006

PATIENT
  Sex: Female
  Weight: 61.2 kg

DRUGS (3)
  1. SUBUTEX [Suspect]
     Route: 060
     Dates: start: 20060313
  2. ADVAIR DISKUS 100/50 [Concomitant]
     Indication: ASTHMA
     Dates: start: 20051101
  3. ALBUTEROL [Concomitant]
     Indication: ASTHMA
     Dosage: 2 PUFFS AS NEEDED SINCE NOV. 2005

REACTIONS (2)
  - ABORTION INDUCED [None]
  - DRUG EXPOSURE DURING PREGNANCY [None]
